FAERS Safety Report 6464295-5 (Version None)
Quarter: 2009Q4

REPORT INFORMATION
  Report Type: 
  Country: None (occurrence: None)
  Receive Date: 20091130
  Receipt Date: 20091130
  Transmission Date: 20100525
  Serious: No
  Sender: FDA-Public Use
  Company Number: None

PATIENT
  Sex: Male
  Weight: 6.8 kg

DRUGS (17)
  1. FOSCARNET [Suspect]
     Indication: ANTIVIRAL PROPHYLAXIS
     Dosage: 180 MG TO 375 MG Q8H IV
     Route: 042
     Dates: start: 20090629
  2. FOSCARNET [Suspect]
     Indication: ANTIVIRAL PROPHYLAXIS
     Dosage: 180 MG TO 375 MG Q8H IV
     Route: 042
     Dates: start: 20090807
  3. CEREZYME [Concomitant]
  4. CHLORHEXIDINE GLUCONATE [Concomitant]
  5. FUROSEMIDE IV [Concomitant]
  6. IMMUNE GLOBULIN INTRAVENOUS (HUMAN) [Concomitant]
  7. MEROPENEM [Concomitant]
  8. METHYLPREDNISOLONE [Concomitant]
  9. MICAFUNGIN [Concomitant]
  10. MORPHINE [Concomitant]
  11. RIBAVIRIN [Concomitant]
  12. URSODIOL [Concomitant]
  13. ACETAMINOPHEN [Concomitant]
  14. DIPHENHYDRAMINE HCL [Concomitant]
  15. NALOXONE [Concomitant]
  16. STOMAHESIVE [Concomitant]
  17. ZINC OXIDE [Concomitant]

REACTIONS (2)
  - IMPAIRED HEALING [None]
  - PENILE ULCERATION [None]
